FAERS Safety Report 7082905-9 (Version None)
Quarter: 2010Q4

REPORT INFORMATION
  Report Type: 
  Country: None (occurrence: None)
  Receive Date: 20101104
  Receipt Date: 20101025
  Transmission Date: 20110411
  Serious: Yes (Other)
  Sender: FDA-Public Use
  Company Number: PHHY2010CH71488

PATIENT

DRUGS (2)
  1. SANDOSTATIN [Suspect]
     Dosage: UNK
  2. ACECOMB [Concomitant]

REACTIONS (1)
  - HYPOGLYCAEMIA [None]
